FAERS Safety Report 9993627 (Version 2)
Quarter: 2014Q2

REPORT INFORMATION
  Report Type: Spontaneous
  Country: JP (occurrence: JP)
  Receive Date: 20140310
  Receipt Date: 20140411
  Transmission Date: 20141212
  Serious: Yes (Hospitalization)
  Sender: FDA-Public Use
  Company Number: JP-PFIZER INC-2014063454

PATIENT
  Age: 87 Year
  Sex: Female

DRUGS (2)
  1. CARDENALIN [Suspect]
     Dosage: 4 MG, DAILY
     Route: 048
  2. REZALTAS [Suspect]

REACTIONS (1)
  - Cerebral infarction [Unknown]
